FAERS Safety Report 4594591-8 (Version None)
Quarter: 2005Q1

REPORT INFORMATION
  Report Type: 
  Country: None (occurrence: None)
  Receive Date: 20050301
  Receipt Date: 20050106
  Transmission Date: 20050727
  Serious: Yes (Other)
  Sender: FDA-Public Use
  Company Number: JP-NOVOPROD-241507

PATIENT
  Age: 6 Year
  Sex: Male
  Weight: 21 kg

DRUGS (1)
  1. NORDITROPIN SIMPLEXX [Suspect]
     Indication: CHONDRODYSTROPHY
     Dosage: 7.4 MG/WEEK
     Route: 058
     Dates: start: 20021101

REACTIONS (2)
  - CONDITION AGGRAVATED [None]
  - CONGENITAL KNEE DEFORMITY [None]
